FAERS Safety Report 13060773 (Version 1)
Quarter: 2016Q4

REPORT INFORMATION
  Report Type: Spontaneous
  Country: US (occurrence: US)
  Receive Date: 20161225
  Receipt Date: 20161225
  Transmission Date: 20170207
  Serious: No
  Sender: FDA-Public Use
  Company Number: US-009507513-1612USA011859

PATIENT

DRUGS (1)
  1. SINGULAIR [Suspect]
     Active Substance: MONTELUKAST SODIUM
     Dosage: REFUSED TO ANSWER
     Route: 048
     Dates: start: 199612

REACTIONS (3)
  - Incorrect product storage [Unknown]
  - Product quality issue [Unknown]
  - No adverse event [Unknown]
